FAERS Safety Report 5388567-0 (Version None)
Quarter: 2007Q3

REPORT INFORMATION
  Report Type: 
  Country: None (occurrence: None)
  Receive Date: 20070716
  Receipt Date: 20070703
  Transmission Date: 20080115
  Serious: Yes (Hospitalization, Disabling, Other)
  Sender: FDA-Public Use
  Company Number: JP-PFIZER INC-2007007673

PATIENT
  Sex: Male
  Weight: 62.6 kg

DRUGS (11)
  1. CABASER [Suspect]
     Indication: PARKINSON'S DISEASE
     Dosage: DAILY DOSE:1MG
     Route: 048
     Dates: start: 20030407, end: 20070323
  2. PERMAX [Suspect]
     Indication: PARKINSON'S DISEASE
     Dosage: DAILY DOSE:1500MCG
     Route: 048
     Dates: start: 20051005, end: 20070309
  3. MADOPAR [Concomitant]
     Indication: PARKINSON'S DISEASE
     Route: 048
  4. DEPAS [Concomitant]
     Route: 048
  5. METHYCOBAL [Concomitant]
     Route: 048
  6. SELEGILINE HCL [Concomitant]
     Indication: PARKINSON'S DISEASE
     Route: 048
  7. GASMOTIN [Concomitant]
     Route: 048
     Dates: start: 20030319
  8. HICEE [Concomitant]
     Route: 048
     Dates: start: 20031105
  9. PRAMIPEXOLE DIHYDROCHLORIDE [Concomitant]
     Indication: PARKINSON'S DISEASE
     Route: 048
     Dates: start: 20040419
  10. ATINES [Concomitant]
     Route: 048
     Dates: start: 20040519
  11. SYMMETREL [Concomitant]
     Indication: PARKINSON'S DISEASE
     Route: 048

REACTIONS (2)
  - AORTIC VALVE INCOMPETENCE [None]
  - HYPERTENSION [None]
